FAERS Safety Report 8126964-0 (Version None)
Quarter: 2012Q1

REPORT INFORMATION
  Report Type: 
  Country: None (occurrence: None)
  Receive Date: 20120210
  Receipt Date: 20120131
  Transmission Date: 20120608
  Serious: Yes (Life-Threatening, Hospitalization)
  Sender: FDA-Public Use
  Company Number: CA-JNJFOC-20120110820

PATIENT
  Sex: Male
  Weight: 120.8 kg

DRUGS (1)
  1. REMICADE [Suspect]
     Indication: ANKYLOSING SPONDYLITIS
     Dosage: ONCE EVERY 6-8 WEEKS
     Route: 042
     Dates: start: 20110712

REACTIONS (4)
  - SUICIDE ATTEMPT [None]
  - COMA [None]
  - IMPAIRED WORK ABILITY [None]
  - PAIN [None]
